FAERS Safety Report 12218941 (Version 2)
Quarter: 2016Q2

REPORT INFORMATION
  Report Type: Report from Study
  Country: US (occurrence: US)
  Receive Date: 20160329
  Receipt Date: 20160415
  Transmission Date: 20160815
  Serious: Yes (Other)
  Sender: FDA-Public Use
  Company Number: US-BAYER-2016-056370

PATIENT
  Age: 30 Year

DRUGS (6)
  1. ABCIXIMAB [Interacting]
     Active Substance: ABCIXIMAB
     Indication: CAROTID ARTERY THROMBOSIS
     Dosage: 7 MG
  2. ABCIXIMAB [Interacting]
     Active Substance: ABCIXIMAB
     Indication: CAROTID ARTERY THROMBOSIS
     Dosage: 7 MG
  3. CLOPIDOGREL [Interacting]
     Active Substance: CLOPIDOGREL BISULFATE
  4. TISSUE PLASMINOGEN ACTIVATOR [Interacting]
     Active Substance: ALTEPLASE
     Indication: CAROTID ARTERY THROMBOSIS
     Dosage: 10 MG
  5. ASPIRIN. [Suspect]
     Active Substance: ASPIRIN
  6. TISSUE PLASMINOGEN ACTIVATOR [Interacting]
     Active Substance: ALTEPLASE
     Indication: CAROTID ARTERY THROMBOSIS
     Dosage: 10 MG
     Route: 013

REACTIONS (6)
  - Cerebral haemorrhage [None]
  - Pharyngeal haemorrhage [None]
  - Potentiating drug interaction [None]
  - Epidural haemorrhage [None]
  - Brain midline shift [None]
  - Subarachnoid haemorrhage [None]
